FAERS Safety Report 6813897-2 (Version None)
Quarter: 2010Q3

REPORT INFORMATION
  Report Type: 
  Country: None (occurrence: None)
  Receive Date: 20100702
  Receipt Date: 20100625
  Transmission Date: 20110219
  Serious: Yes (Hospitalization)
  Sender: FDA-Public Use
  Company Number: US-MERCK-1003USA03547

PATIENT
  Age: 64 Year
  Sex: Female
  Weight: 75 kg

DRUGS (4)
  1. FOSAMAX [Suspect]
     Indication: OSTEOPOROSIS
     Route: 048
     Dates: start: 20011001, end: 20100301
  2. ACTOS [Concomitant]
     Indication: DIABETES MELLITUS
     Route: 048
  3. PRAVASTATIN SODIUM [Concomitant]
     Indication: DYSLIPIDAEMIA
     Route: 048
  4. LISINOPRIL [Concomitant]
     Indication: HYPERTENSION
     Route: 048

REACTIONS (2)
  - FEMUR FRACTURE [None]
  - FOOT FRACTURE [None]
